FAERS Safety Report 22519737 (Version 1)
Quarter: 2023Q2

REPORT INFORMATION
  Report Type: Spontaneous
  Country: US (occurrence: None)
  Receive Date: 20230602
  Receipt Date: 20230602
  Transmission Date: 20230722
  Serious: Yes (Life-Threatening, Hospitalization)
  Sender: FDA-Public Use
  Company Number: None

PATIENT
  Age: 55 Year
  Sex: Female
  Weight: 97.65 kg

DRUGS (16)
  1. MOUNJARO [Suspect]
     Active Substance: TIRZEPATIDE
     Indication: Diabetes mellitus
     Dosage: OTHER FREQUENCY : WEEKLY;?
     Route: 030
     Dates: start: 20220701, end: 20230517
  2. PREMARIN [Concomitant]
  3. BACLOFEN [Concomitant]
  4. GABAPENTIN [Concomitant]
     Active Substance: GABAPENTIN
  5. DYAZIDE [Concomitant]
     Active Substance: HYDROCHLOROTHIAZIDE\TRIAMTERENE
  6. ACCUPRIL [Concomitant]
  7. METFORMIN [Concomitant]
  8. glucose monitor [Concomitant]
  9. paxil [Concomitant]
  10. ATORVASTATIN [Concomitant]
  11. Cranberry [Concomitant]
  12. multivitamin [Concomitant]
  13. magnes L-threonate [Concomitant]
  14. benadryl [Concomitant]
  15. ALLEGRA [Concomitant]
     Active Substance: FEXOFENADINE HYDROCHLORIDE
  16. ZYRTEC [Concomitant]
     Active Substance: CETIRIZINE HYDROCHLORIDE

REACTIONS (4)
  - Gastrointestinal haemorrhage [None]
  - Abdominal discomfort [None]
  - Abdominal discomfort [None]
  - Diverticulum [None]

NARRATIVE: CASE EVENT DATE: 20230520
